FAERS Safety Report 11914452 (Version 4)
Quarter: 2016Q2

REPORT INFORMATION
  Report Type: Report from Study
  Country: CA (occurrence: CA)
  Receive Date: 20160113
  Receipt Date: 20160421
  Transmission Date: 20160815
  Serious: Yes (Death, Other)
  Sender: FDA-Public Use
  Company Number: CA-JNJFOC-20160107251

PATIENT
  Age: 70 Year
  Sex: Female
  Weight: 65.7 kg

DRUGS (4)
  1. REMICADE [Suspect]
     Active Substance: INFLIXIMAB
     Indication: RHEUMATOID ARTHRITIS
     Dosage: 4-6 WEEKS
     Route: 042
     Dates: end: 20160128
  2. PREDNISONE. [Concomitant]
     Active Substance: PREDNISONE
     Indication: PRODUCT USED FOR UNKNOWN INDICATION
     Route: 048
  3. REMICADE [Suspect]
     Active Substance: INFLIXIMAB
     Indication: RHEUMATOID ARTHRITIS
     Dosage: 4-6 WEEKS
     Route: 042
     Dates: start: 201308, end: 201512
  4. REMICADE [Suspect]
     Active Substance: INFLIXIMAB
     Indication: RHEUMATOID ARTHRITIS
     Dosage: APPROXIMATELY TOTAL 58 INFUSIONS RECEIVED.
     Route: 042
     Dates: start: 2003

REACTIONS (4)
  - Bile duct cancer [Fatal]
  - Off label use [Unknown]
  - Hepatic cancer [Fatal]
  - Product use issue [Unknown]

NARRATIVE: CASE EVENT DATE: 2003
